FAERS Safety Report 4574451-9 (Version None)
Quarter: 2005Q1

REPORT INFORMATION
  Report Type: 
  Country: None (occurrence: None)
  Receive Date: 20050204
  Receipt Date: 20050124
  Transmission Date: 20050727
  Serious: Yes (Other)
  Sender: FDA-Public Use
  Company Number: 2005019458

PATIENT
  Age: 14 Year
  Sex: Female
  Weight: 113.3993 kg

DRUGS (4)
  1. ZITHROMAX [Suspect]
     Indication: LYMPHADENOPATHY
     Dosage: 250 MG (250 MG, 1 IN 1 D), ORAL
     Route: 048
     Dates: start: 20050117, end: 20050120
  2. ZITHROMAX [Suspect]
     Indication: VIRAL INFECTION
     Dosage: 250 MG (250 MG, 1 IN 1 D), ORAL
     Route: 048
     Dates: start: 20050117, end: 20050120
  3. SALBUTAMOL (SALBUTAMOL) [Concomitant]
  4. ACETAMINOPHEN [Concomitant]

REACTIONS (12)
  - ABDOMINAL PAIN UPPER [None]
  - BLOOD PRESSURE INCREASED [None]
  - CONDITION AGGRAVATED [None]
  - FEELING ABNORMAL [None]
  - GENERALISED OEDEMA [None]
  - HYPOAESTHESIA [None]
  - LYMPHADENOPATHY [None]
  - MYALGIA [None]
  - NAUSEA [None]
  - PAIN [None]
  - PILOERECTION [None]
  - RASH ERYTHEMATOUS [None]
